FAERS Safety Report 5921468-5 (Version None)
Quarter: 2008Q4

REPORT INFORMATION
  Report Type: 
  Country: None (occurrence: None)
  Receive Date: 20081016
  Receipt Date: 20081016
  Transmission Date: 20090506
  Serious: Yes (Hospitalization, Disabling)
  Sender: FDA-Public Use
  Company Number: None

PATIENT
  Age: 45 Year
  Sex: Female
  Weight: 58.0604 kg

DRUGS (1)
  1. LUNESTA [Suspect]

REACTIONS (4)
  - CEREBRAL DISORDER [None]
  - CIRCADIAN RHYTHM SLEEP DISORDER [None]
  - HUNGER [None]
  - INCREASED APPETITE [None]
